FAERS Safety Report 9615773 (Version 2)
Quarter: 2013Q4

REPORT INFORMATION
  Report Type: Spontaneous
  Country: US (occurrence: US)
  Receive Date: 20131011
  Receipt Date: 20131011
  Transmission Date: 20140711
  Serious: Yes (Other)
  Sender: FDA-Public Use
  Company Number: US-NAPPMUNDI-USA-2013-0098956

PATIENT
  Age: 30 Year
  Sex: Female

DRUGS (3)
  1. BUTRANS [Suspect]
     Indication: PAIN
     Dosage: 10 MCG/HR, WEEKLY
     Route: 062
     Dates: start: 20121214, end: 20130213
  2. BUTRANS [Suspect]
     Dosage: 20 MCG/HR, WEEKLY
     Route: 062
  3. BUTRANS [Suspect]
     Dosage: 5 MCG/HR, WEEKLY
     Route: 062

REACTIONS (6)
  - Application site rash [Not Recovered/Not Resolved]
  - Application site irritation [Unknown]
  - Application site vesicles [Not Recovered/Not Resolved]
  - Application site exfoliation [Not Recovered/Not Resolved]
  - Drug administered at inappropriate site [Unknown]
  - Extra dose administered [Unknown]
